FAERS Safety Report 6688011 (Version 4)
Quarter: 2013Q2

REPORT INFORMATION
  Report Type: Spontaneous
  Country: US (occurrence: US)
  Receive Date: 20080701
  Receipt Date: 20120515
  Transmission Date: 20140414
  Serious: Yes (Other)
  Sender: FDA-Public Use
  Company Number: PHEH2008US05595

PATIENT
  Sex: Female

DRUGS (1)
  1. ZOMETA [Suspect]

REACTIONS (11)
  - OSTEONECROSIS OF JAW [Unknown]
  - PAIN [Unknown]
  - ANXIETY [Unknown]
  - ANHEDONIA [Unknown]
  - DISABILITY [Unknown]
  - INJURY [Unknown]
  - TOOTH REPAIR [Unknown]
  - DENTAL CARIES [Unknown]
  - DENTAL PULP DISORDER [Unknown]
  - TOOTH EXTRACTION [Unknown]
  - TOOTHACHE [Unknown]
